FAERS Safety Report 25157280 (Version 2)
Quarter: 2025Q2

REPORT INFORMATION
  Report Type: Spontaneous
  Country: US (occurrence: US)
  Receive Date: 20250403
  Receipt Date: 20250514
  Transmission Date: 20250716
  Serious: No
  Sender: ABBVIE
  Company Number: US-ABBVIE-6210186

PATIENT
  Age: 42 Year
  Sex: Male
  Weight: 131 kg

DRUGS (2)
  1. SKYRIZI [Suspect]
     Active Substance: RISANKIZUMAB-RZAA
     Indication: Crohn^s disease
     Dosage: FORM STRENGTH: 600 MILLIGRAM
     Route: 058
     Dates: start: 20250225, end: 20250422
  2. SKYRIZI [Suspect]
     Active Substance: RISANKIZUMAB-RZAA
     Indication: Crohn^s disease
     Dosage: FORM STRENGTH: 600 MILLIGRAM
     Route: 058
     Dates: start: 2025

REACTIONS (2)
  - Pustule [Recovered/Resolved]
  - Infusion site vesicles [Unknown]

NARRATIVE: CASE EVENT DATE: 20250101
